FAERS Safety Report 20626939 (Version 1)
Quarter: 2022Q1

REPORT INFORMATION
  Report Type: Spontaneous
  Country: BE (occurrence: BE)
  Receive Date: 20220323
  Receipt Date: 20220323
  Transmission Date: 20220423
  Serious: Yes (Hospitalization, Other)
  Sender: FDA-Public Use
  Company Number: BE-002147023-NVSC2022BE053307

PATIENT

DRUGS (4)
  1. REMICADE [Suspect]
     Active Substance: INFLIXIMAB
     Indication: Inflammatory bowel disease
     Dosage: UNK
     Route: 042
  2. REMICADE [Suspect]
     Active Substance: INFLIXIMAB
     Dosage: UNK
     Route: 042
  3. REMICADE [Suspect]
     Active Substance: INFLIXIMAB
     Dosage: UNK
     Route: 042
  4. USTEKINUMAB [Concomitant]
     Active Substance: USTEKINUMAB

REACTIONS (15)
  - Adrenocortical insufficiency acute [Unknown]
  - Anaphylactic shock [Recovered/Resolved]
  - Clostridium difficile infection [Unknown]
  - Anal abscess [Unknown]
  - Inflammatory bowel disease [Unknown]
  - Hypersensitivity [Unknown]
  - Intestinal obstruction [Unknown]
  - Epstein-Barr virus infection [Unknown]
  - Infusion related reaction [Unknown]
  - Liver function test abnormal [Unknown]
  - Drug level below therapeutic [Unknown]
  - Therapy non-responder [Unknown]
  - Therapeutic response decreased [Unknown]
  - Off label use [Unknown]
  - Product use issue [Unknown]
